FAERS Safety Report 17143559 (Version 1)
Quarter: 2019Q4

REPORT INFORMATION
  Report Type: Spontaneous
  Country: US (occurrence: US)
  Receive Date: 20191211
  Receipt Date: 20191211
  Transmission Date: 20200122
  Serious: No
  Sender: FDA-Public Use
  Company Number: US-AMERICAN REGENT INC-20191507

PATIENT
  Age: 50 Year
  Sex: Female
  Weight: 52.62 kg

DRUGS (5)
  1. PROTONIX [Concomitant]
     Active Substance: PANTOPRAZOLE SODIUM
     Dosage: 40 MG TWICE DAILY
     Route: 048
     Dates: start: 201803, end: 201805
  2. PROTONIX [Concomitant]
     Active Substance: PANTOPRAZOLE SODIUM
     Dosage: 40 MG DAILY
     Route: 048
     Dates: start: 201805, end: 201905
  3. VENOFER [Suspect]
     Active Substance: IRON SUCROSE
     Dosage: 25 MG EVERY 12 WEEKS FOR 4 DOSES
     Route: 042
     Dates: start: 201805, end: 201904
  4. XANAX [Concomitant]
     Active Substance: ALPRAZOLAM
     Indication: PANIC DISORDER
     Dosage: 1-2 MG A DAY (DEPENDING ON YR)
     Route: 065
     Dates: start: 1992
  5. PROTONIX [Concomitant]
     Active Substance: PANTOPRAZOLE SODIUM
     Indication: GASTROOESOPHAGEAL REFLUX DISEASE
     Dosage: 40 MG DAILY
     Route: 048
     Dates: start: 201801, end: 201803

REACTIONS (5)
  - Product use in unapproved indication [Unknown]
  - Nausea [Recovered/Resolved]
  - Dizziness [Recovered/Resolved]
  - Headache [Recovered/Resolved]
  - Inappropriate schedule of product administration [Unknown]

NARRATIVE: CASE EVENT DATE: 201805
